FAERS Safety Report 21410066 (Version 4)
Quarter: 2022Q4

REPORT INFORMATION
  Report Type: Report from Study
  Country: DE (occurrence: None)
  Receive Date: 20221005
  Receipt Date: 20221207
  Transmission Date: 20230113
  Serious: Yes (Hospitalization)
  Sender: FDA-Public Use
  Company Number: DE-ROCHE-3190139

PATIENT
  Age: 53 Year
  Sex: Female
  Weight: 58 kg

DRUGS (8)
  1. ATEZOLIZUMAB [Suspect]
     Active Substance: ATEZOLIZUMAB
     Indication: Triple negative breast cancer
     Dosage: ON 18/AUG/2022 WAS LAST DOSE OF ATEZOILZUMAB  PRIOR TO SAE
     Route: 041
     Dates: start: 20220818
  2. MAGNESIUM [Concomitant]
     Active Substance: MAGNESIUM
     Dates: start: 2020
  3. SELENIUM [Concomitant]
     Active Substance: SELENIUM
  4. VITAMIN B [Concomitant]
     Active Substance: VITAMIN B
  5. IODINE [Concomitant]
     Active Substance: IODINE
  6. PANTOPRAZOLE SODIUM [Concomitant]
     Active Substance: PANTOPRAZOLE SODIUM
     Dates: start: 202201
  7. METHYLPREDNISOLONE [Concomitant]
     Active Substance: METHYLPREDNISOLONE
     Dates: start: 20220902, end: 20220905
  8. BUDESONIDE [Concomitant]
     Active Substance: BUDESONIDE
     Dates: start: 20221004

REACTIONS (2)
  - Diarrhoea [Recovered/Resolved]
  - Immune-mediated enterocolitis [Recovered/Resolved]

NARRATIVE: CASE EVENT DATE: 20220901
